FAERS Safety Report 6321566-0 (Version None)
Quarter: 2009Q3

REPORT INFORMATION
  Report Type: 
  Country: None (occurrence: None)
  Receive Date: 20090821
  Receipt Date: 20090821
  Transmission Date: 20100115
  Serious: Yes (Other)
  Sender: FDA-Public Use
  Company Number: None

PATIENT
  Sex: Male
  Weight: 10.4327 kg

DRUGS (1)
  1. TRIVISOL WITH IRON LOT 114012A EXP: JAN 11 [Suspect]
     Indication: BREAST FEEDING
     Dosage: 1 ML DAILY ORAL
     Route: 048
     Dates: start: 20090811, end: 20090816

REACTIONS (5)
  - BLOOD IRON INCREASED [None]
  - DECREASED APPETITE [None]
  - DIARRHOEA [None]
  - POOR QUALITY DRUG ADMINISTERED [None]
  - PRODUCT QUALITY ISSUE [None]
